FAERS Safety Report 5165449-0 (Version None)
Quarter: 2006Q4

REPORT INFORMATION
  Report Type: 
  Country: None (occurrence: None)
  Receive Date: 20061206
  Receipt Date: 20061206
  Transmission Date: 20070319
  Serious: Yes (Other)
  Sender: FDA-Public Use
  Company Number: 200616048EU

PATIENT
  Sex: Female

DRUGS (1)
  1. NICODERM [Suspect]
     Route: 062

REACTIONS (2)
  - FACIAL PALSY [None]
  - OPHTHALMOPLEGIA [None]
